FAERS Safety Report 22228879 (Version 1)
Quarter: 2023Q2

REPORT INFORMATION
  Report Type: Spontaneous
  Country: US (occurrence: US)
  Receive Date: 20230419
  Receipt Date: 20230419
  Transmission Date: 20230721
  Serious: No
  Sender: FDA-Public Use
  Company Number: US-BRISTOL-MYERS SQUIBB COMPANY-2023-053260

PATIENT
  Age: 70 Year
  Sex: Male

DRUGS (4)
  1. PRAVASTATIN SODIUM [Suspect]
     Active Substance: PRAVASTATIN SODIUM
     Indication: Lipids increased
  2. FLUVASTATIN [Suspect]
     Active Substance: FLUVASTATIN SODIUM
     Indication: Lipids increased
  3. LOVASTATIN [Suspect]
     Active Substance: LOVASTATIN
     Indication: Lipids increased
  4. ATORVASTATIN [Suspect]
     Active Substance: ATORVASTATIN
     Indication: Lipids increased

REACTIONS (1)
  - Myalgia [Unknown]
